FAERS Safety Report 21482799 (Version 1)
Quarter: 2022Q4

REPORT INFORMATION
  Report Type: Spontaneous
  Country: CN (occurrence: None)
  Receive Date: 20221020
  Receipt Date: 20221020
  Transmission Date: 20230113
  Serious: Yes (Other)
  Sender: FDA-Public Use
  Company Number: CN-ROCHE-3203630

PATIENT
  Age: 53 Year
  Sex: Female

DRUGS (10)
  1. MABTHERA [Suspect]
     Active Substance: RITUXIMAB
     Indication: Diffuse large B-cell lymphoma
     Dosage: R-CHOP, D0, FOR 6 CYCLES
     Route: 065
     Dates: start: 20181226, end: 20190424
  2. MABTHERA [Suspect]
     Active Substance: RITUXIMAB
     Dosage: R-CHOP, D0
     Route: 065
     Dates: start: 20220607
  3. CYCLOPHOSPHAMIDE [Concomitant]
     Active Substance: CYCLOPHOSPHAMIDE
     Indication: Diffuse large B-cell lymphoma
     Dosage: R-CHOP, D1, FOR 6 CYCLES
     Dates: start: 20181226, end: 20190424
  4. CYCLOPHOSPHAMIDE [Concomitant]
     Active Substance: CYCLOPHOSPHAMIDE
     Dosage: R-CHOP, D1
     Dates: start: 20220607
  5. VINDESINE [Concomitant]
     Active Substance: VINDESINE
     Indication: Diffuse large B-cell lymphoma
     Dosage: R-CHOP, D1, FOR 6 CYCLES
     Dates: start: 20181226, end: 20190424
  6. DOXORUBICIN HYDROCHLORIDE [Concomitant]
     Active Substance: DOXORUBICIN HYDROCHLORIDE
     Indication: Diffuse large B-cell lymphoma
     Dosage: R-CHOP, D1, FOR 6 CYCLES
     Dates: start: 20181226, end: 20190424
  7. DOXORUBICIN HYDROCHLORIDE [Concomitant]
     Active Substance: DOXORUBICIN HYDROCHLORIDE
     Dosage: R-CHOP, D1
     Dates: start: 20220607
  8. PREDNISONE [Concomitant]
     Active Substance: PREDNISONE
     Indication: Diffuse large B-cell lymphoma
     Dosage: R-CHOP, D1-5, FOR 6 CYCLES
     Dates: start: 20181226, end: 20190424
  9. PREDNISONE [Concomitant]
     Active Substance: PREDNISONE
     Dosage: R-CHOP, D1-5
     Dates: start: 20220607
  10. VINCRISTINE [Concomitant]
     Active Substance: VINCRISTINE
     Indication: Diffuse large B-cell lymphoma
     Dosage: R-CHOP, D1
     Dates: start: 20220607

REACTIONS (1)
  - Myelosuppression [Unknown]
